FAERS Safety Report 12293521 (Version 1)
Quarter: 2016Q2

REPORT INFORMATION
  Report Type: Spontaneous
  Country: US (occurrence: US)
  Receive Date: 20160421
  Receipt Date: 20160421
  Transmission Date: 20160815
  Serious: No
  Sender: FDA-Public Use
  Company Number: US-WOCKHARDT USA, LLC-1050852

PATIENT
  Sex: Male

DRUGS (1)
  1. ZIPRASIDONE HYDROCHLORIDE. [Suspect]
     Active Substance: ZIPRASIDONE HYDROCHLORIDE

REACTIONS (2)
  - Headache [Unknown]
  - Dehydration [None]
